FAERS Safety Report 7576097 (Version 2)
Quarter: 2014Q1

REPORT INFORMATION
  Report Type: Spontaneous
  Country: US (occurrence: US)
  Receive Date: 20100908
  Receipt Date: 20140218
  Transmission Date: 20141002
  Serious: Yes (Other)
  Sender: FDA-Public Use
  Company Number: US-B.I. PHARMACEUTICALS,INC./RIDGEFIELD-2010-BP-10059BP

PATIENT
  Sex: Female

DRUGS (10)
  1. SPIRIVA HANDIHALER [Suspect]
     Indication: CHRONIC OBSTRUCTIVE PULMONARY DISEASE
     Dosage: 18 MCG
     Route: 055
     Dates: start: 2007
  2. SPIRIVA HANDIHALER [Suspect]
     Dosage: 18 MCG
     Route: 055
     Dates: end: 2008
  3. SPIRIVA HANDIHALER [Suspect]
     Dosage: 18 MCG
     Route: 055
     Dates: start: 20100902
  4. ALBUTEROL [Concomitant]
     Indication: CHRONIC OBSTRUCTIVE PULMONARY DISEASE
     Dosage: FORMULATION: INHALATION AEROSOL
     Route: 055
  5. NORVASC [Concomitant]
     Indication: HYPERTENSION
     Dosage: 10 MG
     Route: 048
  6. LISINOPRIL [Concomitant]
     Indication: HYPERTENSION
     Dosage: 5 MG
     Route: 048
  7. ADVAIR HFA [Concomitant]
     Indication: CHRONIC OBSTRUCTIVE PULMONARY DISEASE
     Dosage: 4 PUF
     Route: 055
  8. CLONAZEPAM [Concomitant]
     Indication: PANIC ATTACK
     Dosage: 1 MG
     Route: 048
  9. HYDROXYCHLOROQUINE [Concomitant]
     Indication: CUTANEOUS LUPUS ERYTHEMATOSUS
  10. HYDROXYCHLOROQUINE [Concomitant]
     Indication: ARTHRITIS

REACTIONS (8)
  - Lung neoplasm malignant [Recovered/Resolved]
  - Cataract [Not Recovered/Not Resolved]
  - Non-cardiac chest pain [Not Recovered/Not Resolved]
  - Anxiety [Not Recovered/Not Resolved]
  - Panic attack [Not Recovered/Not Resolved]
  - Hearing disability [Not Recovered/Not Resolved]
  - Cataract [Not Recovered/Not Resolved]
  - Exposure during pregnancy [Unknown]
